FAERS Safety Report 9782325 (Version 2)
Quarter: 2013Q4

REPORT INFORMATION
  Report Type: Report from Study
  Country: US (occurrence: US)
  Receive Date: 20131226
  Receipt Date: 20131226
  Transmission Date: 20140711
  Serious: Yes (Life-Threatening, Hospitalization)
  Sender: FDA-Public Use
  Company Number: US-JNJFOC-20110201834

PATIENT
  Age: 67 Year
  Sex: Male
  Weight: 101.7 kg

DRUGS (25)
  1. GOLIMUMAB [Suspect]
     Indication: RHEUMATOID ARTHRITIS
     Route: 058
     Dates: start: 20100510
  2. GOLIMUMAB [Suspect]
     Indication: RHEUMATOID ARTHRITIS
     Route: 058
     Dates: start: 20100802
  3. GOLIMUMAB [Suspect]
     Indication: RHEUMATOID ARTHRITIS
     Route: 058
     Dates: start: 20101122
  4. GOLIMUMAB [Suspect]
     Indication: RHEUMATOID ARTHRITIS
     Route: 058
     Dates: start: 20100607
  5. PLACEBO [Suspect]
     Indication: RHEUMATOID ARTHRITIS
     Route: 042
     Dates: start: 20100510
  6. PLACEBO [Suspect]
     Indication: RHEUMATOID ARTHRITIS
     Route: 042
     Dates: start: 20100607
  7. PLACEBO [Suspect]
     Indication: RHEUMATOID ARTHRITIS
     Route: 042
     Dates: start: 20100802
  8. PLACEBO [Suspect]
     Indication: RHEUMATOID ARTHRITIS
     Route: 042
     Dates: start: 20101122
  9. PREDNISONE [Concomitant]
     Indication: RHEUMATOID ARTHRITIS
     Route: 048
  10. MULTIVITAMINS [Concomitant]
     Indication: NUTRITIONAL SUPPLEMENTATION
     Route: 048
  11. FOSAMAX [Concomitant]
     Indication: OSTEOPENIA
     Route: 048
  12. VITAMIN D [Concomitant]
     Indication: NUTRITIONAL SUPPLEMENTATION
     Route: 048
  13. LISINOPRIL [Concomitant]
     Indication: HYPERTENSION
     Route: 048
  14. CITALOPRAM [Concomitant]
     Indication: DEPRESSION
     Route: 048
  15. RANITIDINE [Concomitant]
     Indication: GASTROOESOPHAGEAL REFLUX DISEASE
     Route: 048
  16. OMEGA 3 [Concomitant]
     Indication: NUTRITIONAL SUPPLEMENTATION
     Route: 048
  17. PLAQUENIL [Concomitant]
     Indication: RHEUMATOID ARTHRITIS
     Route: 048
  18. FOLIC ACID [Concomitant]
     Indication: PROPHYLAXIS
     Route: 040
  19. COUMADIN [Concomitant]
     Indication: PROPHYLAXIS
     Route: 048
  20. COUMADIN [Concomitant]
     Indication: PROPHYLAXIS
     Route: 048
  21. TRAMADOL [Concomitant]
     Indication: RHEUMATOID ARTHRITIS
     Route: 048
  22. METHOTREXATE [Concomitant]
     Indication: RHEUMATOID ARTHRITIS
     Route: 048
  23. CEPHALEXIN [Concomitant]
     Indication: WOUND INFECTION
     Route: 048
  24. CYCLOBENZAPRINE [Concomitant]
     Indication: BACK PAIN
     Route: 048
  25. CYCLOBENZAPRINE [Concomitant]
     Indication: NECK PAIN
     Route: 048

REACTIONS (1)
  - Oesophagitis haemorrhagic [Recovered/Resolved]
